FAERS Safety Report 9477461 (Version 1)
Quarter: 2013Q3

REPORT INFORMATION
  Report Type: Spontaneous
  Country: US (occurrence: US)
  Receive Date: 20130827
  Receipt Date: 20130827
  Transmission Date: 20140515
  Serious: No
  Sender: FDA-Public Use
  Company Number: US-B.I. PHARMACEUTICALS,INC./RIDGEFIELD-2013-BI-25730BP

PATIENT
  Age: 45 Year
  Sex: Male

DRUGS (9)
  1. COMBIVENT [Suspect]
     Indication: PRODUCT USED FOR UNKNOWN INDICATION
     Dosage: STRENGTH:20 MCG / 100 MCG; DAILY DOSE:80 MCG/ 400MCG
     Route: 055
     Dates: start: 201303
  2. NORCO [Concomitant]
     Route: 048
  3. SOMA [Concomitant]
     Route: 048
  4. CYMBALTA [Concomitant]
     Route: 048
  5. SPIRON/HCTZ [Concomitant]
     Indication: SWELLING
     Route: 048
  6. NEURONTIN [Concomitant]
     Route: 048
  7. MORPHINE [Concomitant]
     Route: 048
  8. XANAX [Concomitant]
     Indication: ANXIETY
     Route: 048
  9. NEXIUM [Concomitant]
     Route: 048

REACTIONS (1)
  - Initial insomnia [Not Recovered/Not Resolved]
